FAERS Safety Report 4338634-5 (Version None)
Quarter: 2004Q2

REPORT INFORMATION
  Report Type: 
  Country: None (occurrence: None)
  Receive Date: 20040414
  Receipt Date: 20040402
  Transmission Date: 20050107
  Serious: Yes (Life-Threatening, Hospitalization)
  Sender: FDA-Public Use
  Company Number: GB-BRISTOL-MYERS SQUIBB COMPANY-12548947

PATIENT
  Age: 53 Year
  Sex: Female
  Weight: 62 kg

DRUGS (7)
  1. CISPLATIN [Suspect]
     Indication: NON-SMALL CELL LUNG CANCER
     Dosage: THERAPY COMMENCED ON 02-FEB-2004
     Route: 042
  2. VINORELBINE TARTRATE [Suspect]
     Indication: NON-SMALL CELL LUNG CANCER
     Dosage: 25 KG/ 15 MG; THERAPY COMMENCED ON 02-FEB-2004
     Route: 040
  3. THYROXINE [Concomitant]
     Indication: HYPOTHYROIDISM
     Route: 048
  4. GABAPENTIN [Concomitant]
     Indication: PAIN
     Route: 048
  5. CITALOPRAM [Concomitant]
     Indication: DEPRESSION
     Route: 048
  6. OXYCONTIN [Concomitant]
     Indication: PAIN
     Route: 048
  7. CO-DANTHRAMER [Concomitant]
     Indication: CONSTIPATION
     Route: 048

REACTIONS (2)
  - LEUKOPENIA [None]
  - NEUTROPENIC SEPSIS [None]
